FAERS Safety Report 20035829 (Version 2)
Quarter: 2021Q4

REPORT INFORMATION
  Report Type: Spontaneous
  Country: US (occurrence: None)
  Receive Date: 20211105
  Receipt Date: 20211125
  Transmission Date: 20220303
  Serious: Yes (Death)
  Sender: FDA-Public Use
  Company Number: US-ROCHE-2950374

PATIENT
  Age: 72 Year
  Sex: Male

DRUGS (1)
  1. ESBRIET [Suspect]
     Active Substance: PIRFENIDONE
     Indication: Idiopathic pulmonary fibrosis
     Route: 048
     Dates: start: 20210119

REACTIONS (4)
  - Pneumonia [Fatal]
  - Chronic obstructive pulmonary disease [Fatal]
  - Hypovolaemic shock [Fatal]
  - Overdose [Fatal]

NARRATIVE: CASE EVENT DATE: 20211012
